FAERS Safety Report 17717819 (Version 1)
Quarter: 2020Q2

REPORT INFORMATION
  Report Type: Spontaneous
  Country: PL (occurrence: PL)
  Receive Date: 20200428
  Receipt Date: 20200428
  Transmission Date: 20200714
  Serious: Yes (Other)
  Sender: FDA-Public Use
  Company Number: NVSC2020PL111791

PATIENT
  Age: 66 Year
  Sex: Female
  Weight: 95 kg

DRUGS (6)
  1. NOREPINEPHRINE. [Suspect]
     Active Substance: NOREPINEPHRINE
     Indication: CARDIAC FAILURE ACUTE
     Dosage: 0.3 UG/KG/MIN
     Route: 041
  2. LANDIOLOL [Suspect]
     Active Substance: LANDIOLOL
     Indication: ARRHYTHMIA
     Dosage: 20 UG/KG/MIN
     Route: 042
  3. DOBUTAMINE [Suspect]
     Active Substance: DOBUTAMINE HYDROCHLORIDE
     Indication: CARDIAC FAILURE ACUTE
     Dosage: 10 UG/KG/MIN
     Route: 042
  4. FUROSEMIDE. [Suspect]
     Active Substance: FUROSEMIDE
     Indication: CARDIAC FAILURE ACUTE
     Dosage: 120 MG, QD (1.76 UG/KG/MIN)
     Route: 041
  5. LEVOSIMENDAN [Suspect]
     Active Substance: LEVOSIMENDAN
     Indication: CARDIAC FAILURE ACUTE
     Dosage: 0.1 UG/KG/MIN
     Route: 042
  6. METOPROLOL. [Suspect]
     Active Substance: METOPROLOL
     Indication: ARRHYTHMIA
     Dosage: UNK
     Route: 048

REACTIONS (3)
  - Drug ineffective [Unknown]
  - Tachycardia [Unknown]
  - Bradycardia [Unknown]
